FAERS Safety Report 5506042-7 (Version None)
Quarter: 2007Q4

REPORT INFORMATION
  Report Type: 
  Country: None (occurrence: None)
  Receive Date: 20071105
  Receipt Date: 20071031
  Transmission Date: 20080405
  Serious: Yes (Other)
  Sender: FDA-Public Use
  Company Number: PHEH2007US11772

PATIENT
  Age: 77 Year
  Sex: Male

DRUGS (2)
  1. TEKTURNA [Suspect]
     Indication: HYPERTENSION
     Dosage: 300 MG, UNK
     Route: 048
  2. INSPRA [Concomitant]
     Dosage: 25 MG, UNK

REACTIONS (1)
  - DIABETIC NEUROPATHY [None]
